FAERS Safety Report 5140199-5 (Version None)
Quarter: 2006Q4

REPORT INFORMATION
  Report Type: 
  Country: None (occurrence: None)
  Receive Date: 20061025
  Receipt Date: 20061018
  Transmission Date: 20070319
  Serious: Yes (Other)
  Sender: FDA-Public Use
  Company Number: 163-20785-06100859

PATIENT
  Sex: Male

DRUGS (1)
  1. THALOMID [Suspect]
     Indication: BRAIN NEOPLASM MALIGNANT
     Dosage: 200MG-50MG, DAILY, ORAL
     Route: 048
     Dates: start: 20061012

REACTIONS (4)
  - ARTHRALGIA [None]
  - ASTHENIA [None]
  - HYPOAESTHESIA [None]
  - VISUAL ACUITY REDUCED [None]
